FAERS Safety Report 7686638-7 (Version None)
Quarter: 2011Q3

REPORT INFORMATION
  Report Type: 
  Country: None (occurrence: None)
  Receive Date: 20110816
  Receipt Date: 20110816
  Transmission Date: 20111222
  Serious: Yes (Life-Threatening)
  Sender: FDA-Public Use
  Company Number: None

PATIENT
  Age: 50 Year
  Sex: Female
  Weight: 61.234 kg

DRUGS (1)
  1. CHANTIX [Suspect]
     Indication: SMOKING CESSATION THERAPY
     Dosage: 0.5,1MG 2ND WEEK
     Route: 048
     Dates: start: 20110720, end: 20110813

REACTIONS (5)
  - SELF-INJURIOUS IDEATION [None]
  - ANGER [None]
  - DEPRESSION [None]
  - ABNORMAL BEHAVIOUR [None]
  - VIOLENCE-RELATED SYMPTOM [None]
